FAERS Safety Report 16912661 (Version 4)
Quarter: 2020Q2

REPORT INFORMATION
  Report Type: Report from Study
  Country: None (occurrence: NL)
  Receive Date: 20191014
  Receipt Date: 20200611
  Transmission Date: 20200713
  Serious: Yes (Death, Hospitalization)
  Sender: FDA-Public Use
  Company Number: NL-ABBVIE-19S-114-2823983-00

PATIENT
  Age: 75 Year
  Sex: Female
  Weight: 59 kg

DRUGS (1)
  1. DUODOPA [Suspect]
     Active Substance: CARBIDOPA\LEVODOPA
     Indication: PARKINSON^S DISEASE
     Dosage: 24 HOUR ADMINISTRATION.PATIENT USES 3-4 ED/DAY.?MD2.0 CD:4.3 ED:3.2 ND:3.3 END:1.7
     Route: 050
     Dates: start: 20150406

REACTIONS (27)
  - Feeling abnormal [Not Recovered/Not Resolved]
  - Sleep talking [Not Recovered/Not Resolved]
  - Memory impairment [Not Recovered/Not Resolved]
  - Parkinson^s disease [Not Recovered/Not Resolved]
  - Musculoskeletal stiffness [Not Recovered/Not Resolved]
  - Wheelchair user [Not Recovered/Not Resolved]
  - Psychiatric symptom [Not Recovered/Not Resolved]
  - Neuropathy peripheral [Not Recovered/Not Resolved]
  - Stoma site erythema [Recovered/Resolved]
  - Stoma site erythema [Recovering/Resolving]
  - Hypersomnia [Recovered/Resolved]
  - Pain in extremity [Not Recovered/Not Resolved]
  - Impaired self-care [Not Recovered/Not Resolved]
  - Dementia [Not Recovered/Not Resolved]
  - On and off phenomenon [Recovering/Resolving]
  - Muscle rigidity [Not Recovered/Not Resolved]
  - Cognitive disorder [Not Recovered/Not Resolved]
  - Weight increased [Not Recovered/Not Resolved]
  - Hallucination [Recovering/Resolving]
  - Mobility decreased [Not Recovered/Not Resolved]
  - Infrequent bowel movements [Unknown]
  - Somnolence [Not Recovered/Not Resolved]
  - Parkinson^s disease [Fatal]
  - Speech disorder [Not Recovered/Not Resolved]
  - Sleep deficit [Recovered/Resolved]
  - Mastication disorder [Not Recovered/Not Resolved]
  - Dyskinesia [Not Recovered/Not Resolved]

NARRATIVE: CASE EVENT DATE: 2019
